FAERS Safety Report 23410923 (Version 1)
Quarter: 2024Q1

REPORT INFORMATION
  Report Type: Spontaneous
  Country: ZA (occurrence: None)
  Receive Date: 20240117
  Receipt Date: 20240117
  Transmission Date: 20240409
  Serious: Yes (Death)
  Sender: FDA-Public Use
  Company Number: 2024A011473

PATIENT
  Age: 41 Year
  Sex: Male

DRUGS (5)
  1. DAPAGLIFLOZIN PROPANEDIOL [Suspect]
     Active Substance: DAPAGLIFLOZIN PROPANEDIOL
     Indication: Diabetes mellitus
     Route: 048
  2. PHENTERMINE [Concomitant]
     Active Substance: PHENTERMINE
  3. SERDEP [Concomitant]
     Indication: Depression
  4. LIPOGEN [Concomitant]
     Indication: Blood cholesterol
  5. VALDUO [Concomitant]
     Dates: end: 202312

REACTIONS (1)
  - Death [Fatal]

NARRATIVE: CASE EVENT DATE: 20231227
